FAERS Safety Report 7757276-2 (Version None)
Quarter: 2011Q3

REPORT INFORMATION
  Report Type: 
  Country: None (occurrence: None)
  Receive Date: 20110916
  Receipt Date: 20110907
  Transmission Date: 20111222
  Serious: Yes (Hospitalization)
  Sender: FDA-Public Use
  Company Number: US-BAYER-2011-051754

PATIENT
  Age: 39 Year
  Sex: Female
  Weight: 113.38 kg

DRUGS (6)
  1. MOTRIN [Concomitant]
  2. ZYRTEC [Concomitant]
     Dosage: UNK
     Dates: start: 19960101
  3. YASMIN [Suspect]
     Indication: CONTRACEPTION
     Dosage: UNK
     Dates: start: 20041001, end: 20091001
  4. ASCORBIC ACID [Concomitant]
  5. ADVIL LIQUI-GELS [Concomitant]
  6. MULTIVITAMIN PREPARATION + MINERAL SUPPLEMENT [Concomitant]

REACTIONS (6)
  - ANXIETY [None]
  - DEEP VEIN THROMBOSIS [None]
  - INJURY [None]
  - PAIN [None]
  - PULMONARY EMBOLISM [None]
  - THROMBOSIS [None]
